FAERS Safety Report 8967944 (Version 1)
Quarter: 2012Q4

REPORT INFORMATION
  Report Type: 
  Country: FR (occurrence: FR)
  Receive Date: 20121217
  Receipt Date: 20121217
  Transmission Date: 20130627
  Serious: Yes (Hospitalization, Other)
  Sender: FDA-Public Use
  Company Number: FR-BRISTOL-MYERS SQUIBB COMPANY-17195488

PATIENT
  Age: 82 Year
  Sex: Female

DRUGS (15)
  1. SPRYCEL [Suspect]
     Indication: ACUTE LYMPHOCYTIC LEUKAEMIA
     Dosage: 07-23Sep2012
     Route: 048
     Dates: start: 20120907
  2. METHOTREXATE [Suspect]
     Indication: ACUTE LYMPHOCYTIC LEUKAEMIA
     Dosage: 22-Sep-2012
     Route: 037
     Dates: start: 20120907
  3. CYTARABINE [Suspect]
     Indication: ACUTE LYMPHOCYTIC LEUKAEMIA
     Dosage: 22-Sep-2012
     Route: 037
     Dates: start: 20120907
  4. VINCRISTINE [Suspect]
     Indication: ACUTE LYMPHOCYTIC LEUKAEMIA
     Dosage: 14-Sep-2012 and 21-Sep-2012.
     Dates: start: 20120907
  5. ZELITREX [Concomitant]
  6. ZOPHREN [Concomitant]
  7. ARANESP [Concomitant]
  8. INSULIN [Concomitant]
  9. LOXEN [Concomitant]
  10. DEPO-MEDROL [Concomitant]
     Dosage: 15-Sep-2012 and 22-Sep-2012
     Route: 037
     Dates: start: 20120907
  11. DEXAMETHASONE [Concomitant]
     Dosage: 08-Sep-2012, 14-Sep-2012, 15-Sep-2012, 21-Sep-2012 and 22-Sep-2012.
     Dates: start: 20120907
  12. PLITICAN [Concomitant]
     Dosage: stopped and reintroduced;07 to 24-Sep-2012.
     Dates: start: 20120907
  13. TAZOCILLINE [Concomitant]
     Dosage: 24-Sep-2012
     Dates: start: 20120911
  14. VANCOMYCIN [Concomitant]
     Dosage: 01-Oct-2012
     Dates: start: 20120917
  15. INEXIUM [Concomitant]
     Dosage: 18 to 26-Sep-2012;stopped and reintroduced
     Dates: start: 20120918

REACTIONS (4)
  - Leukoencephalopathy [Recovering/Resolving]
  - Myoclonus [Recovered/Resolved]
  - Asterixis [Recovered/Resolved]
  - Hypertensive crisis [Unknown]
